FAERS Safety Report 21763423 (Version 1)
Quarter: 2022Q4

REPORT INFORMATION
  Report Type: Spontaneous
  Country: IN (occurrence: IN)
  Receive Date: 20221221
  Receipt Date: 20221221
  Transmission Date: 20230113
  Serious: Yes (Death, Other)
  Sender: FDA-Public Use
  Company Number: IN-drreddys-LIT/IND/22/0158443

PATIENT

DRUGS (13)
  1. TOPOTECAN [Suspect]
     Active Substance: TOPOTECAN HYDROCHLORIDE
     Indication: Ewing^s sarcoma recurrent
     Dosage: 2 CYCLES
  2. TOPOTECAN [Suspect]
     Active Substance: TOPOTECAN HYDROCHLORIDE
     Dosage: 4 CYCLES
  3. IRINOTECAN [Suspect]
     Active Substance: IRINOTECAN
     Indication: Ewing^s sarcoma recurrent
     Dosage: 2 CYCLES
  4. IRINOTECAN [Suspect]
     Active Substance: IRINOTECAN
     Dosage: 4 CYCLES OVER 23 WEEKS
  5. VINCRISTINE [Suspect]
     Active Substance: VINCRISTINE
     Indication: Ewing^s sarcoma recurrent
     Dosage: 2 CYCLES
     Route: 042
  6. VINCRISTINE [Suspect]
     Active Substance: VINCRISTINE
     Dosage: 4 CYCLES
  7. TEMOZOLOMIDE [Suspect]
     Active Substance: TEMOZOLOMIDE
     Indication: Ewing^s sarcoma recurrent
     Dosage: 2 CYCLES
  8. TEMOZOLOMIDE [Suspect]
     Active Substance: TEMOZOLOMIDE
     Dosage: 4 CYCLES OVER 23 WEEKS
  9. CYCLOPHOSPHAMIDE [Suspect]
     Active Substance: CYCLOPHOSPHAMIDE
     Indication: Ewing^s sarcoma recurrent
     Dosage: 2 CYCLES
  10. CYCLOPHOSPHAMIDE [Suspect]
     Active Substance: CYCLOPHOSPHAMIDE
     Dosage: 4 CYCLES
  11. IFOSFAMIDE [Concomitant]
     Active Substance: IFOSFAMIDE
     Indication: Ewing^s sarcoma recurrent
  12. ETOPOSIDE [Concomitant]
     Active Substance: ETOPOSIDE
     Indication: Ewing^s sarcoma recurrent
  13. DOXORUBICIN [Concomitant]
     Active Substance: DOXORUBICIN
     Indication: Ewing^s sarcoma recurrent

REACTIONS (4)
  - Bacterial sepsis [Fatal]
  - Toxicity to various agents [Unknown]
  - Diarrhoea [Unknown]
  - Product use in unapproved indication [Unknown]
